FAERS Safety Report 7918207-5 (Version None)
Quarter: 2011Q4

REPORT INFORMATION
  Report Type: 
  Country: None (occurrence: None)
  Receive Date: 20111116
  Receipt Date: 20111104
  Transmission Date: 20120403
  Serious: Yes (Hospitalization)
  Sender: FDA-Public Use
  Company Number: US-GLAXOSMITHKLINE-A0870951A

PATIENT
  Sex: Male
  Weight: 91.8 kg

DRUGS (4)
  1. LIPITOR [Concomitant]
  2. AVANDIA [Suspect]
     Indication: DIABETES MELLITUS
     Dosage: 8MG PER DAY
     Route: 048
     Dates: start: 20020101
  3. GLUCOVANCE [Concomitant]
  4. LISINOPRIL [Concomitant]

REACTIONS (5)
  - CORONARY ARTERY DISEASE [None]
  - PAIN IN EXTREMITY [None]
  - GAIT DISTURBANCE [None]
  - NON-CARDIAC CHEST PAIN [None]
  - HEART RATE IRREGULAR [None]
